FAERS Safety Report 13522341 (Version 1)
Quarter: 2017Q2

REPORT INFORMATION
  Report Type: Spontaneous
  Country: US (occurrence: US)
  Receive Date: 20170508
  Receipt Date: 20170508
  Transmission Date: 20170830
  Serious: No
  Sender: FDA-Public Use
  Company Number: None

PATIENT
  Age: 49 Year
  Sex: Female
  Weight: 72 kg

DRUGS (3)
  1. LAMICTAL/LAMTRIGINE [Concomitant]
  2. ADVIL PM [Concomitant]
     Active Substance: DIPHENHYDRAMINE CITRATE\IBUPROFEN
  3. LAMICTAL [Suspect]
     Active Substance: LAMOTRIGINE
     Indication: BIPOLAR DISORDER
     Dates: start: 20140508, end: 20170507

REACTIONS (5)
  - Skin exfoliation [None]
  - Vision blurred [None]
  - Rash erythematous [None]
  - Apathy [None]
  - Fatigue [None]

NARRATIVE: CASE EVENT DATE: 20170508
